FAERS Safety Report 6535333-6 (Version None)
Quarter: 2010Q1

REPORT INFORMATION
  Report Type: 
  Country: None (occurrence: None)
  Receive Date: 20100113
  Receipt Date: 20100108
  Transmission Date: 20100710
  Serious: Yes (Death, Hospitalization)
  Sender: FDA-Public Use
  Company Number: FR-ROCHE-678697

PATIENT
  Sex: Male

DRUGS (5)
  1. RIVOTRIL [Suspect]
     Indication: INTENTIONAL OVERDOSE
     Route: 048
     Dates: start: 20090907, end: 20090907
  2. BROMAZEPAM [Suspect]
     Indication: INTENTIONAL OVERDOSE
     Route: 048
     Dates: start: 20090907, end: 20090907
  3. EQUANIL [Suspect]
     Indication: INTENTIONAL OVERDOSE
     Route: 048
     Dates: start: 20090907, end: 20090907
  4. LIORESAL [Suspect]
     Indication: INTENTIONAL OVERDOSE
     Route: 048
     Dates: start: 20090907, end: 20090907
  5. NOCTAMIDE [Suspect]
     Indication: INTENTIONAL OVERDOSE
     Route: 048
     Dates: start: 20090907, end: 20090907

REACTIONS (3)
  - CARDIAC ARREST [None]
  - COMA [None]
  - RESPIRATORY ARREST [None]
